FAERS Safety Report 8289956-7 (Version None)
Quarter: 2012Q2

REPORT INFORMATION
  Report Type: 
  Country: None (occurrence: None)
  Receive Date: 20120417
  Receipt Date: 20120402
  Transmission Date: 20120825
  Serious: Yes (Death)
  Sender: FDA-Public Use
  Company Number: DK-ROCHE-1058608

PATIENT
  Sex: Male

DRUGS (3)
  1. PREDNISOLONE [Concomitant]
     Route: 065
  2. METHOTREXATE [Concomitant]
     Route: 065
  3. ACTEMRA [Suspect]
     Indication: RHEUMATOID ARTHRITIS
     Route: 042
     Dates: start: 20100801, end: 20120223

REACTIONS (3)
  - CARDIAC FAILURE [None]
  - PNEUMONIA [None]
  - STAPHYLOCOCCAL SEPSIS [None]
